FAERS Safety Report 4506224-7 (Version None)
Quarter: 2004Q4

REPORT INFORMATION
  Report Type: 
  Country: None (occurrence: None)
  Receive Date: 20041119
  Receipt Date: 20041027
  Transmission Date: 20050328
  Serious: Yes (Life-Threatening, Hospitalization, Other)
  Sender: FDA-Public Use
  Company Number: US-MERCK-0410USA04149

PATIENT
  Age: 77 Year
  Sex: Male

DRUGS (2)
  1. VIOXX [Suspect]
     Indication: PAIN MANAGEMENT
     Route: 048
     Dates: end: 20040101
  2. VIOXX [Suspect]
     Indication: OSTEOARTHRITIS
     Route: 048
     Dates: end: 20040101

REACTIONS (16)
  - ARTHRALGIA [None]
  - CELLULITIS [None]
  - CORONARY ARTERY DISEASE [None]
  - DERMATITIS ALLERGIC [None]
  - DIABETES MELLITUS [None]
  - GROIN PAIN [None]
  - HYPERCHOLESTEROLAEMIA [None]
  - HYPERTENSION [None]
  - LACERATION [None]
  - LOCALISED OSTEOARTHRITIS [None]
  - MYOCARDIAL INFARCTION [None]
  - OEDEMA PERIPHERAL [None]
  - PHARYNGITIS [None]
  - RENAL FAILURE [None]
  - SPINAL OSTEOARTHRITIS [None]
  - VIRAL UPPER RESPIRATORY TRACT INFECTION [None]
